FAERS Safety Report 8357013-7 (Version None)
Quarter: 2012Q2

REPORT INFORMATION
  Report Type: 
  Country: None (occurrence: None)
  Receive Date: 20120514
  Receipt Date: 20120430
  Transmission Date: 20120825
  Serious: Yes (Hospitalization, Other)
  Sender: FDA-Public Use
  Company Number: AU-ROCHE-1060588

PATIENT
  Sex: Male
  Weight: 70.2 kg

DRUGS (6)
  1. RIBAVIRIN [Suspect]
     Indication: HEPATITIS C
     Route: 048
     Dates: start: 20110308, end: 20120417
  2. PEGASYS [Suspect]
     Indication: HEPATITIS C
     Route: 058
     Dates: start: 20110308, end: 20120417
  3. TRAMADOL HYDROCHLORIDE [Concomitant]
     Indication: ANALGESIC THERAPY
     Route: 048
     Dates: start: 20110101
  4. NEUPOGEN [Suspect]
     Indication: NEUTROPENIA
     Route: 058
     Dates: start: 20111011
  5. PEGASYS [Suspect]
     Route: 058
  6. NEXIUM [Concomitant]
     Indication: GASTROOESOPHAGEAL REFLUX DISEASE
     Route: 048

REACTIONS (6)
  - PANCYTOPENIA [None]
  - ANAEMIA [None]
  - HYPOKALAEMIA [None]
  - UROSEPSIS [None]
  - DIARRHOEA [None]
  - HYPONATRAEMIA [None]
